FAERS Safety Report 22351019 (Version 1)
Quarter: 2023Q2

REPORT INFORMATION
  Report Type: Other
  Country: US (occurrence: None)
  Receive Date: 20230522
  Receipt Date: 20230522
  Transmission Date: 20230721
  Serious: Yes (Hospitalization, Other)
  Sender: FDA-Public Use
  Company Number: US-ROCHE-3348333

PATIENT
  Age: 71 Year
  Sex: Female
  Weight: 72.64 kg

DRUGS (9)
  1. OCREVUS [Suspect]
     Active Substance: OCRELIZUMAB
     Indication: Relapsing multiple sclerosis
     Dosage: NO
     Route: 042
     Dates: start: 20180206
  2. OCREVUS [Suspect]
     Active Substance: OCRELIZUMAB
     Dosage: 4 HOUR INFUSION
     Route: 042
     Dates: start: 2020
  3. SOLU-MEDROL [Suspect]
     Active Substance: METHYLPREDNISOLONE SODIUM SUCCINATE
     Indication: Migraine
     Route: 042
  4. BOTOX [Concomitant]
     Active Substance: ONABOTULINUMTOXINA
  5. MODAFINIL [Concomitant]
     Active Substance: MODAFINIL
  6. HYDROCODONE [Concomitant]
     Active Substance: HYDROCODONE
  7. LYRICA [Concomitant]
     Active Substance: PREGABALIN
  8. CELEBREX [Concomitant]
     Active Substance: CELECOXIB
  9. NEXIUM [Concomitant]
     Active Substance: ESOMEPRAZOLE MAGNESIUM

REACTIONS (10)
  - Multiple sclerosis [Not Recovered/Not Resolved]
  - Gait disturbance [Not Recovered/Not Resolved]
  - Urinary tract infection [Unknown]
  - Back pain [Recovering/Resolving]
  - Neuropathy peripheral [Recovering/Resolving]
  - Musculoskeletal stiffness [Recovering/Resolving]
  - Pain in extremity [Recovering/Resolving]
  - Hyperhidrosis [Recovered/Resolved]
  - Hemiparesis [Recovering/Resolving]
  - Migraine [Recovered/Resolved]

NARRATIVE: CASE EVENT DATE: 20230508
